FAERS Safety Report 7972186-3 (Version None)
Quarter: 2011Q4

REPORT INFORMATION
  Report Type: 
  Country: None (occurrence: None)
  Receive Date: 20111212
  Receipt Date: 20111130
  Transmission Date: 20120403
  Serious: Yes (Other)
  Sender: FDA-Public Use
  Company Number: ES-ELI_LILLY_AND_COMPANY-ES201107007487

PATIENT
  Sex: Female
  Weight: 72 kg

DRUGS (11)
  1. ACETAMINOPHEN [Concomitant]
     Indication: PAIN
     Dosage: 2 DF, QD
     Route: 048
  2. PROZAC [Concomitant]
     Indication: ANTIDEPRESSANT THERAPY
     Dosage: 2 DF, QD
     Route: 048
  3. LANTANON [Concomitant]
     Indication: ANTIDEPRESSANT THERAPY
     Dosage: 10 MG, QD
     Route: 048
  4. FERROUS SULFATE TAB [Concomitant]
     Dosage: 80 MG, QD
     Route: 048
  5. FORTEO [Suspect]
     Dosage: 20 UG, QD
     Route: 058
     Dates: start: 20110101
  6. LEXATIN [Concomitant]
     Indication: ANXIETY
     Dosage: 4.5 MG, QD
     Route: 048
  7. FORTEO [Suspect]
     Indication: OSTEOPOROSIS
     Dosage: 20 UG, QD
     Route: 058
     Dates: start: 20110513, end: 20110101
  8. NEXIUM [Concomitant]
     Indication: GASTRITIS PROPHYLAXIS
     Dosage: 40 MG, QD
     Route: 048
  9. MINOTON [Concomitant]
     Indication: GASTRITIS PROPHYLAXIS
     Dosage: 1 DF, QD
     Route: 048
  10. FORTEO [Suspect]
     Dosage: 20 UG, QD
     Route: 058
     Dates: start: 20110101
  11. MIDAZOLAM HCL [Concomitant]
     Indication: SLEEP DISORDER
     Dosage: 7.5 MG, QD
     Route: 048

REACTIONS (1)
  - WEIGHT INCREASED [None]
